FAERS Safety Report 12088226 (Version 2)
Quarter: 2016Q3

REPORT INFORMATION
  Report Type: Spontaneous
  Country: BR (occurrence: BR)
  Receive Date: 20160218
  Receipt Date: 20160802
  Transmission Date: 20161109
  Serious: Yes (Hospitalization, Other)
  Sender: FDA-Public Use
  Company Number: BR-009507513-1602BRA007763

PATIENT
  Age: 37 Year
  Sex: Female
  Weight: 69 kg

DRUGS (1)
  1. NUVARING [Suspect]
     Active Substance: ETHINYL ESTRADIOL\ETONOGESTREL
     Indication: CONTRACEPTION
     Dosage: 1 RING FREQUENCY REPORTED AS: CYCLICAL, 3 WEEKS OF USE, 1 WEEK OF PAUSE
     Route: 067
     Dates: start: 2004

REACTIONS (4)
  - Nephrolithiasis [Not Recovered/Not Resolved]
  - Renal colic [Unknown]
  - Incorrect drug administration duration [Unknown]
  - Ear infection [Recovered/Resolved]

NARRATIVE: CASE EVENT DATE: 2013
